FAERS Safety Report 5255463-9 (Version None)
Quarter: 2007Q1

REPORT INFORMATION
  Report Type: 
  Country: None (occurrence: None)
  Receive Date: 20061201
  Receipt Date: 20060901
  Transmission Date: 20070707
  Serious: No
  Sender: FDA-Public Use
  Company Number: 2006PV020594

PATIENT
  Age: 69 Year
  Sex: Female
  Weight: 88.4514 kg

DRUGS (7)
  1. BYETTA [Suspect]
     Indication: DIABETES MELLITUS NON-INSULIN-DEPENDENT
     Dosage: SEE IMAGE
     Route: 058
     Dates: start: 20050701, end: 20051001
  2. BYETTA [Suspect]
     Indication: DIABETES MELLITUS NON-INSULIN-DEPENDENT
     Dosage: SEE IMAGE
     Route: 058
     Dates: start: 20051001
  3. METFORMIN HCL [Concomitant]
  4. CRESTOR [Concomitant]
  5. WELLBUTRIN [Concomitant]
  6. LASIX [Concomitant]
  7. HYZAAR [Concomitant]

REACTIONS (1)
  - BURNING SENSATION [None]
